FAERS Safety Report 5866518-X (Version None)
Quarter: 2008Q3

REPORT INFORMATION
  Report Type: 
  Country: None (occurrence: None)
  Receive Date: 20080902
  Receipt Date: 20080902
  Transmission Date: 20090109
  Serious: Yes (Hospitalization)
  Sender: FDA-Public Use
  Company Number: PHEH1995US00964

PATIENT
  Sex: Male
  Weight: 60.3 kg

DRUGS (7)
  1. SANDIMMUNE [Suspect]
     Route: 048
     Dates: start: 19950903
  2. PREDNISONE TAB [Concomitant]
  3. PERCOCET [Concomitant]
  4. MAGNESIUM OXIDE [Concomitant]
  5. SEPTRA DS [Concomitant]
  6. ACTIGALL [Concomitant]
  7. MYCELEX [Concomitant]

REACTIONS (3)
  - BACTERIAL INFECTION [None]
  - CYTOMEGALOVIRUS INFECTION [None]
  - LIVER FUNCTION TEST ABNORMAL [None]
